FAERS Safety Report 12952001 (Version 1)
Quarter: 2016Q4

REPORT INFORMATION
  Report Type: Spontaneous
  Country: US (occurrence: US)
  Receive Date: 20161117
  Receipt Date: 20161117
  Transmission Date: 20170207
  Serious: Yes (Other)
  Sender: FDA-Public Use
  Company Number: US-NOVOPROD-486725

PATIENT
  Age: 51 Year
  Sex: Male

DRUGS (1)
  1. NOVOLOG [Suspect]
     Active Substance: INSULIN ASPART
     Indication: TYPE 1 DIABETES MELLITUS
     Dosage: SLIDING SCALE, 17 UNITS PLUS MEAL DOSE (4 UNITS) SO TOTAL OF 21 UNITS
     Route: 058
     Dates: start: 2009

REACTIONS (2)
  - Device malfunction [Not Recovered/Not Resolved]
  - Blood glucose increased [Not Recovered/Not Resolved]
